FAERS Safety Report 11844612 (Version 2)
Quarter: 2016Q1

REPORT INFORMATION
  Report Type: Spontaneous
  Country: US (occurrence: US)
  Receive Date: 20151217
  Receipt Date: 20160222
  Transmission Date: 20160526
  Serious: Yes (Hospitalization, Other)
  Sender: FDA-Public Use
  Company Number: US-BAYER-2015-487516

PATIENT
  Age: 52 Year
  Sex: Female
  Weight: 61.68 kg

DRUGS (4)
  1. HYDROCODONE W/ACETAMINOPHEN [Concomitant]
     Active Substance: ACETAMINOPHEN\HYDROCODONE BITARTRATE
     Indication: PELVIC PAIN
     Dosage: UNK
     Dates: start: 2015
  2. DEPO-MEDROL [Concomitant]
     Active Substance: METHYLPREDNISOLONE ACETATE
  3. CIPROFLOXACIN HCL [Concomitant]
     Active Substance: CIPROFLOXACIN HYDROCHLORIDE
     Dosage: 500 MG, BID
     Route: 048
  4. MIRENA [Suspect]
     Active Substance: LEVONORGESTREL
     Indication: CONTRACEPTION
     Dosage: 20 MCG/24HR, CONT
     Route: 015
     Dates: start: 20080131, end: 20150716

REACTIONS (10)
  - Embedded device [None]
  - Pelvic pain [None]
  - Seroma [None]
  - Wound dehiscence [None]
  - Genital haemorrhage [None]
  - Wound infection [None]
  - Necrosis [None]
  - Device use error [None]
  - Haematoma [None]
  - Hypertonic bladder [None]

NARRATIVE: CASE EVENT DATE: 20150617
